FAERS Safety Report 5833849-9 (Version None)
Quarter: 2008Q3

REPORT INFORMATION
  Report Type: 
  Country: None (occurrence: None)
  Receive Date: 20080805
  Receipt Date: 20080721
  Transmission Date: 20090109
  Serious: Yes (Hospitalization)
  Sender: FDA-Public Use
  Company Number: US-BAYER-200828906NA

PATIENT
  Sex: Female

DRUGS (2)
  1. BETASERON [Suspect]
     Indication: DRUG USE FOR UNKNOWN INDICATION
  2. AVONEX [Concomitant]

REACTIONS (3)
  - GAIT DISTURBANCE [None]
  - MULTIPLE SCLEROSIS [None]
  - TREMOR [None]
